FAERS Safety Report 11309409 (Version 3)
Quarter: 2015Q3

REPORT INFORMATION
  Report Type: Report from Study
  Country: BE (occurrence: BE)
  Receive Date: 20150724
  Receipt Date: 20150817
  Transmission Date: 20151125
  Serious: Yes (Other)
  Sender: FDA-Public Use
  Company Number: BE-BAUSCH-BL-2015-017678

PATIENT
  Age: 61 Year
  Sex: Male

DRUGS (7)
  1. CETUXIMAB [Suspect]
     Active Substance: CETUXIMAB
     Indication: OROPHARYNGEAL SQUAMOUS CELL CARCINOMA
     Dosage: ONCE
     Route: 065
     Dates: start: 20060614, end: 20060614
  2. FLUOROURACIL. [Suspect]
     Active Substance: FLUOROURACIL
     Indication: OROPHARYNGEAL SQUAMOUS CELL CARCINOMA
     Route: 065
     Dates: start: 20060614
  3. DEXAMETHASONE. [Concomitant]
     Active Substance: DEXAMETHASONE
     Indication: PREMEDICATION
     Route: 048
  4. CISPLATIN. [Suspect]
     Active Substance: CISPLATIN
     Indication: OROPHARYNGEAL SQUAMOUS CELL CARCINOMA
     Route: 065
     Dates: start: 20060614
  5. CETUXIMAB [Suspect]
     Active Substance: CETUXIMAB
     Route: 065
     Dates: start: 20060614
  6. DOCETAXEL. [Suspect]
     Active Substance: DOCETAXEL
     Indication: OROPHARYNGEAL SQUAMOUS CELL CARCINOMA
     Route: 065
     Dates: start: 20060614
  7. CIPROFLOXACIN. [Concomitant]
     Active Substance: CIPROFLOXACIN
     Indication: ANTIBIOTIC PROPHYLAXIS
     Route: 065

REACTIONS (1)
  - Febrile neutropenia [Unknown]

NARRATIVE: CASE EVENT DATE: 2006
